FAERS Safety Report 6553638-X (Version None)
Quarter: 2010Q1

REPORT INFORMATION
  Report Type: 
  Country: None (occurrence: None)
  Receive Date: 20100122
  Receipt Date: 20100115
  Transmission Date: 20100710
  Serious: Yes (Death)
  Sender: FDA-Public Use
  Company Number: CLOF-1000836

PATIENT

DRUGS (5)
  1. CLOFARABINE (CLOFARABINE) TABLET [Suspect]
     Indication: ACUTE LEUKAEMIA
  2. FLUCONAZOLE [Concomitant]
  3. POTASSIUM CHLORIDE [Concomitant]
  4. CIPROFLOXACIN [Concomitant]
  5. ALDACTONE [Concomitant]

REACTIONS (6)
  - ASTHENIA [None]
  - FEBRILE NEUTROPENIA [None]
  - HAEMATOCRIT DECREASED [None]
  - HAEMOGLOBIN DECREASED [None]
  - RED BLOOD CELL COUNT DECREASED [None]
  - WHITE BLOOD CELL COUNT DECREASED [None]
